FAERS Safety Report 18980190 (Version 1)
Quarter: 2021Q1

REPORT INFORMATION
  Report Type: Spontaneous
  Country: US (occurrence: US)
  Receive Date: 20210306
  Receipt Date: 20210306
  Transmission Date: 20210420
  Serious: Yes (Other)
  Sender: FDA-Public Use
  Company Number: None

PATIENT
  Age: 65 Year
  Sex: Female
  Weight: 63.9 kg

DRUGS (14)
  1. MODERNA COVID?19 VACCINE [Suspect]
     Active Substance: CX-024414
  2. COLESEVELAM [Concomitant]
     Active Substance: COLESEVELAM
  3. TURMERIC/CURCUMIN [Concomitant]
  4. VITAMIN C [Concomitant]
     Active Substance: ASCORBIC ACID
  5. ANTI?DIARRHEA [Concomitant]
  6. MULTIVITAMIN [Concomitant]
     Active Substance: VITAMINS
  7. VITAMIN D3 [Concomitant]
     Active Substance: CHOLECALCIFEROL
  8. VALCYCLAVOR [Concomitant]
  9. ESTROVEN [Concomitant]
     Active Substance: DIETARY SUPPLEMENT
  10. VISUDYNE [Suspect]
     Active Substance: VERTEPORFIN
     Indication: CHORIORETINOPATHY
     Dosage: ?          OTHER FREQUENCY:ONE TIME ONLY;OTHER ROUTE:IV?
     Route: 042
     Dates: start: 20210305, end: 20210305
  11. VITAMIN B COMPLEX [Concomitant]
     Active Substance: CYANOCOBALAMIN\DEXPANTHENOL\NIACINAMIDE\PYRIDOXINE HYDROCHLORIDE\RIBOFLAVIN 5^-PHOSPHATE SODIUM\THIAMINE HYDROCHLORIDE\VITAMIN B COMPLEX
  12. BIOTIN [Concomitant]
     Active Substance: BIOTIN
  13. VITAMIN B12 [Concomitant]
     Active Substance: CYANOCOBALAMIN
  14. MELATONIN [Concomitant]
     Active Substance: MELATONIN

REACTIONS (5)
  - Flatulence [None]
  - Musculoskeletal pain [None]
  - Hypokinesia [None]
  - Back pain [None]
  - Drug interaction [None]

NARRATIVE: CASE EVENT DATE: 20210305
